FAERS Safety Report 5491022-0 (Version None)
Quarter: 2007Q4

REPORT INFORMATION
  Report Type: 
  Country: None (occurrence: None)
  Receive Date: 20071019
  Receipt Date: 20060929
  Transmission Date: 20080405
  Serious: No
  Sender: FDA-Public Use
  Company Number: US-BRISTOL-MYERS SQUIBB COMPANY-13526132

PATIENT

DRUGS (1)
  1. CAFCIT [Suspect]
     Route: 042

REACTIONS (1)
  - MEDICATION ERROR [None]
